FAERS Safety Report 12951278 (Version 1)
Quarter: 2016Q4

REPORT INFORMATION
  Report Type: Spontaneous
  Country: DE (occurrence: DE)
  Receive Date: 20161117
  Receipt Date: 20161117
  Transmission Date: 20170207
  Serious: Yes (Hospitalization)
  Sender: FDA-Public Use
  Company Number: DE-009507513-1611DEU007326

PATIENT
  Sex: Female

DRUGS (1)
  1. PUREGON [Suspect]
     Active Substance: FOLLITROPIN
     Dosage: DAILY IN THE EVENING
     Route: 058

REACTIONS (1)
  - Urinary hesitation [Unknown]
